FAERS Safety Report 8439882-5 (Version None)
Quarter: 2012Q2

REPORT INFORMATION
  Report Type: 
  Country: None (occurrence: None)
  Receive Date: 20120615
  Receipt Date: 20120608
  Transmission Date: 20120825
  Serious: Yes (Death, Hospitalization, Other)
  Sender: FDA-Public Use
  Company Number: PHHY2012CO020985

PATIENT
  Sex: Female

DRUGS (12)
  1. CARBOPLATIN [Concomitant]
  2. CAPECITABINE [Concomitant]
  3. MORPHINE [Concomitant]
  4. PREDNISOLONE [Concomitant]
  5. ZOLEDRONIC ACID [Concomitant]
  6. TEMOZOLOMIDE [Concomitant]
  7. RANITIDINE [Concomitant]
  8. OMEPRAZOLE [Concomitant]
  9. VITAMIN K TAB [Concomitant]
  10. SANDOSTATIN LAR [Suspect]
     Indication: PANCREATIC NEUROENDOCRINE TUMOUR
     Dosage: 20 MG UNK
     Route: 030
     Dates: start: 20110205, end: 20111230
  11. ETOPOSIDE [Concomitant]
  12. ONDANSETRON [Concomitant]

REACTIONS (13)
  - RENAL DISORDER [None]
  - DIZZINESS [None]
  - DYSPNOEA [None]
  - METASTASES TO LIVER [None]
  - DEATH [None]
  - ASTHENIA [None]
  - HAEMATEMESIS [None]
  - NEOPLASM MALIGNANT [None]
  - METASTASES TO SPINE [None]
  - SOMNOLENCE [None]
  - JAUNDICE [None]
  - NEOPLASM PROGRESSION [None]
  - BLOOD ELECTROLYTES INCREASED [None]
